FAERS Safety Report 9789598 (Version 2)
Quarter: 2014Q1

REPORT INFORMATION
  Report Type: Spontaneous
  Country: CA (occurrence: CA)
  Receive Date: 20131231
  Receipt Date: 20140115
  Transmission Date: 20141002
  Serious: No
  Sender: FDA-Public Use
  Company Number: CA-AMGEN-CANSP2013091311

PATIENT
  Age: 55 Year
  Sex: Female

DRUGS (2)
  1. ENBREL [Suspect]
     Indication: PSORIASIS
     Dosage: 50 MG, UNK
     Route: 065
     Dates: start: 20130815
  2. AMLODINE                           /00972401/ [Concomitant]
     Dosage: 5 MG, UNK

REACTIONS (2)
  - Abdominal distension [Not Recovered/Not Resolved]
  - Influenza [Not Recovered/Not Resolved]
